FAERS Safety Report 15740282 (Version 1)
Quarter: 2018Q4

REPORT INFORMATION
  Report Type: Spontaneous
  Country: DE (occurrence: DE)
  Receive Date: 20181219
  Receipt Date: 20181219
  Transmission Date: 20190205
  Serious: Yes (Life-Threatening, Other)
  Sender: FDA-Public Use
  Company Number: DE-TOLMAR, INC.-TOLG20180717

PATIENT
  Sex: Male

DRUGS (2)
  1. ACYCLOVIR. [Suspect]
     Active Substance: ACYCLOVIR
     Indication: HERPES SIMPLEX ENCEPHALITIS
     Dosage: INCREASED TO 1000 MG
     Route: 042
  2. ACYCLOVIR. [Suspect]
     Active Substance: ACYCLOVIR
     Dosage: INITIALLY 750 MG
     Route: 042

REACTIONS (2)
  - Drug ineffective [Recovered/Resolved with Sequelae]
  - Pathogen resistance [Recovered/Resolved with Sequelae]
